FAERS Safety Report 11177714 (Version 1)
Quarter: 2015Q2

REPORT INFORMATION
  Report Type: Spontaneous
  Country: US (occurrence: US)
  Receive Date: 20150610
  Receipt Date: 20150610
  Transmission Date: 20150821
  Serious: No
  Sender: FDA-Public Use
  Company Number: US-PFIZER INC-2015192414

PATIENT
  Age: 60 Year
  Sex: Female
  Weight: 82 kg

DRUGS (9)
  1. CELECOXIB. [Suspect]
     Active Substance: CELECOXIB
     Indication: SCIATICA
  2. TYLENOL ARTHRITIS PAIN [Suspect]
     Active Substance: ACETAMINOPHEN
     Indication: ARTHRALGIA
     Dosage: 1300 MG, DAILY
     Route: 048
  3. SIMVASTATIN. [Concomitant]
     Active Substance: SIMVASTATIN
     Indication: BLOOD CHOLESTEROL
     Dosage: 20 MG, ALTERNATE DAY (ONE EVERY OTHER DAY)
  4. LORAZEPAM. [Concomitant]
     Active Substance: LORAZEPAM
     Dosage: 0.5 MG, DAILY
  5. CELECOXIB. [Suspect]
     Active Substance: CELECOXIB
     Indication: ARTHRALGIA
     Dosage: 200 MG, 2X/DAY
     Route: 048
     Dates: start: 20150505, end: 2015
  6. LORAZEPAM. [Concomitant]
     Active Substance: LORAZEPAM
     Indication: ANXIETY
     Dosage: 1 MG, DAILY
  7. LISINOPRIL. [Concomitant]
     Active Substance: LISINOPRIL
     Indication: BLOOD PRESSURE ABNORMAL
     Dosage: 20 MG, 1X/DAY
  8. METFORMIN [Concomitant]
     Active Substance: METFORMIN HYDROCHLORIDE
     Dosage: 500 MG, 2X/DAY
  9. LORAZEPAM. [Concomitant]
     Active Substance: LORAZEPAM
     Dosage: 0.75 MG, DAILY

REACTIONS (5)
  - Depressed mood [Unknown]
  - Irritability [Unknown]
  - Drug effect incomplete [Recovered/Resolved]
  - Asthenia [Unknown]
  - Disorientation [Unknown]

NARRATIVE: CASE EVENT DATE: 201505
